FAERS Safety Report 6292792-4 (Version None)
Quarter: 2009Q3

REPORT INFORMATION
  Report Type: 
  Country: None (occurrence: None)
  Receive Date: 20090731
  Receipt Date: 20090720
  Transmission Date: 20100115
  Serious: Yes (Hospitalization, Other)
  Sender: FDA-Public Use
  Company Number: DK-NOVOPROD-289958

PATIENT
  Sex: Female

DRUGS (4)
  1. LEVEMIR [Suspect]
     Indication: DRUG EXPOSURE DURING PREGNANCY
     Dosage: 44 IU, QD AT WEEK 11
     Route: 064
  2. LEVEMIR [Suspect]
     Dosage: 56 IU, QD AT WEEK 34
     Route: 064
  3. NOVORAPID [Suspect]
     Indication: DRUG EXPOSURE DURING PREGNANCY
     Dosage: 19 IU, QD AT WEEK 11
     Route: 064
  4. NOVORAPID [Suspect]
     Dosage: 12 IU, QD AT WEEK 34
     Route: 064

REACTIONS (3)
  - DRUG EXPOSURE DURING PREGNANCY [None]
  - FOETAL DISTRESS SYNDROME [None]
  - PREMATURE BABY [None]
